FAERS Safety Report 7489425-8 (Version None)
Quarter: 2011Q2

REPORT INFORMATION
  Report Type: 
  Country: None (occurrence: None)
  Receive Date: 20110518
  Receipt Date: 20110511
  Transmission Date: 20111010
  Serious: Yes (Hospitalization)
  Sender: FDA-Public Use
  Company Number: SE-MERCK-1105SWE00038

PATIENT
  Age: 71 Year
  Sex: Female

DRUGS (11)
  1. CALCIUM CARBONATE [Suspect]
     Route: 048
     Dates: end: 20101110
  2. PROPIOMAZINE MALEATE [Concomitant]
     Route: 048
  3. METOPROLOL SUCCINATE [Concomitant]
     Route: 048
  4. METFORMIN HCL [Suspect]
     Indication: DIABETES MELLITUS
     Route: 048
     Dates: end: 20101110
  5. ZOPICLONE [Concomitant]
     Route: 048
  6. LITHIUM SULFATE [Suspect]
     Indication: PSYCHOTIC DISORDER
     Route: 048
  7. LEVOTHYROXINE SODIUM [Concomitant]
     Route: 048
  8. RAMIPRIL [Concomitant]
     Route: 048
  9. ZUCLOPENTHIXOL HYDROCHLORIDE [Concomitant]
     Route: 048
  10. CYANOCOBALAMIN [Concomitant]
     Route: 048
  11. ZOCOR [Suspect]
     Route: 048
     Dates: end: 20101110

REACTIONS (5)
  - HYPERCALCAEMIA [None]
  - CHANGE OF BOWEL HABIT [None]
  - FATIGUE [None]
  - PAIN [None]
  - DRUG THERAPEUTIC INCOMPATIBILITY [None]
